FAERS Safety Report 23569748 (Version 1)
Quarter: 2024Q1

REPORT INFORMATION
  Report Type: Spontaneous
  Country: IN (occurrence: IN)
  Receive Date: 20240227
  Receipt Date: 20240227
  Transmission Date: 20240410
  Serious: Yes (Life-Threatening, Hospitalization, Other)
  Sender: FDA-Public Use
  Company Number: IN-MACLEODS PHARMACEUTICALS US LTD-MAC2024045994

PATIENT

DRUGS (11)
  1. LIDOCAINE [Interacting]
     Active Substance: LIDOCAINE
     Indication: Maintenance of anaesthesia
     Dosage: 5 MILLILITER (2 %, 1 IN 200000 ADRENALINE, INJECTION)
  2. EPINEPHRINE [Interacting]
     Active Substance: EPINEPHRINE
     Indication: Product used for unknown indication
     Dosage: UNK (0.05 MG/ML, 1 IN 200000 ADRENALINE)
  3. DESFLURANE [Interacting]
     Active Substance: DESFLURANE
     Indication: Maintenance of anaesthesia
     Dosage: UNK (MINIMUM ALVEOLAR CONCENTRATION 1 TO 1.2)
  4. VECURONIUM [Concomitant]
     Active Substance: VECURONIUM BROMIDE
     Indication: Induction of anaesthesia
     Dosage: 8 MILLIGRAM
     Route: 065
  5. DEXAMETHASONE [Concomitant]
     Active Substance: DEXAMETHASONE
     Indication: Product used for unknown indication
     Dosage: 16 MILLIGRAM
     Route: 042
  6. FENTANYL [Concomitant]
     Active Substance: FENTANYL\FENTANYL CITRATE
     Indication: Induction of anaesthesia
     Dosage: 140 MICROGRAM
     Route: 042
  7. NITROUS OXIDE [Concomitant]
     Active Substance: NITROUS OXIDE
     Indication: Product used for unknown indication
     Dosage: UNK
     Route: 065
  8. XYLOMETAZOLINE HYDROCHLORIDE [Concomitant]
     Active Substance: XYLOMETAZOLINE HYDROCHLORIDE
     Indication: Product used for unknown indication
     Dosage: UNK (NASAL DROPS)
     Route: 045
  9. SALINE [Concomitant]
     Active Substance: SODIUM CHLORIDE
     Indication: Product used for unknown indication
     Dosage: UNK
     Route: 065
  10. THIOPENTAL SODIUM [Concomitant]
     Active Substance: THIOPENTAL SODIUM
     Indication: Induction of anaesthesia
     Dosage: 250 MILLIGRAM
     Route: 065
  11. OXYGEN [Concomitant]
     Active Substance: OXYGEN
     Indication: Product used for unknown indication
     Dosage: UNK
     Route: 065

REACTIONS (5)
  - Ventricular tachycardia [Recovered/Resolved]
  - Blood pressure immeasurable [Recovered/Resolved]
  - Hypertension [Recovering/Resolving]
  - Electrocardiogram QT prolonged [Recovered/Resolved]
  - Drug interaction [Recovered/Resolved]
